FAERS Safety Report 5310536-7 (Version None)
Quarter: 2007Q2

REPORT INFORMATION
  Report Type: 
  Country: None (occurrence: None)
  Receive Date: 20070427
  Receipt Date: 20070423
  Transmission Date: 20071010
  Serious: Yes (Hospitalization, Disabling)
  Sender: FDA-Public Use
  Company Number: MY-MERCK-0702MYS00006

PATIENT
  Age: 65 Year
  Sex: Female
  Weight: 100 kg

DRUGS (1)
  1. FOSAMAX [Suspect]
     Indication: OSTEOPOROSIS
     Route: 048

REACTIONS (1)
  - GASTRIC MUCOSAL LESION [None]
